FAERS Safety Report 10236476 (Version 2)
Quarter: 2014Q3

REPORT INFORMATION
  Report Type: Report from Study
  Country: AU (occurrence: AU)
  Receive Date: 20140613
  Receipt Date: 20140702
  Transmission Date: 20150326
  Serious: Yes (Hospitalization, Other)
  Sender: FDA-Public Use
  Company Number: AU-BRISTOL-MYERS SQUIBB COMPANY-20976072

PATIENT
  Age: 63 Year
  Sex: Female

DRUGS (8)
  1. ABATACEPT SUBQ INJECTION 125MG/ML [Suspect]
     Active Substance: ABATACEPT
     Indication: RHEUMATOID ARTHRITIS
     Dosage: LAST DOSE:29MAY14
     Route: 058
     Dates: start: 20110530
  2. SYMBICORT [Concomitant]
     Active Substance: BUDESONIDE\FORMOTEROL FUMARATE DIHYDRATE
  3. METHOTREXATE [Concomitant]
     Active Substance: METHOTREXATE
  4. SIMVASTIN [Concomitant]
     Active Substance: SIMVASTATIN
  5. PREDNISOLONE. [Concomitant]
     Active Substance: PREDNISOLONE
  6. CARTIA XT [Concomitant]
     Active Substance: DILTIAZEM HYDROCHLORIDE
  7. FOLIC ACID. [Concomitant]
     Active Substance: FOLIC ACID
  8. KARVEZIDE [Concomitant]
     Active Substance: HYDROCHLOROTHIAZIDE\IRBESARTAN

REACTIONS (2)
  - Bronchiectasis [Unknown]
  - Lung infection pseudomonal [Unknown]

NARRATIVE: CASE EVENT DATE: 20140530
